FAERS Safety Report 7289927-3 (Version None)
Quarter: 2011Q1

REPORT INFORMATION
  Report Type: 
  Country: None (occurrence: None)
  Receive Date: 20110214
  Receipt Date: 20110207
  Transmission Date: 20110831
  Serious: Yes (Death)
  Sender: FDA-Public Use
  Company Number: US-ASTELLAS-2011US000544

PATIENT
  Sex: Female
  Weight: 53 kg

DRUGS (11)
  1. ASCORBIC ACID [Concomitant]
     Indication: SUPPLEMENTATION THERAPY
     Dosage: 500 MG, BID
     Route: 048
     Dates: end: 20110204
  2. LIPITOR [Concomitant]
     Indication: BLOOD CHOLESTEROL
     Dosage: 10 MG, UID/QD
     Route: 048
     Dates: end: 20110204
  3. IRON [Concomitant]
     Indication: ANAEMIA
     Dosage: 320 MG, TID
     Route: 048
     Dates: end: 20110204
  4. PROGRAF [Suspect]
     Indication: HEART TRANSPLANT
     Dosage: 1.5 MG, BID
     Route: 048
     Dates: start: 19960216, end: 20110204
  5. MYCOPHENOLATE [Concomitant]
     Indication: HEART TRANSPLANT
     Dosage: 750 MG, BID
     Route: 048
     Dates: end: 20110204
  6. RAPAMUNE [Concomitant]
     Indication: HEART TRANSPLANT
     Dosage: 2 MG, UID/QD
     Route: 048
     Dates: end: 20110204
  7. LISINOPRIL [Concomitant]
     Indication: RENAL DISORDER
     Dosage: 2.5 MG, UID/QD
     Route: 048
     Dates: end: 20110204
  8. RAPAMUNE [Concomitant]
  9. ASPIRIN [Concomitant]
     Indication: COAGULOPATHY
     Dosage: 75 MG, UID/QD
     Route: 048
     Dates: end: 20110204
  10. CALCIUM [Concomitant]
     Indication: SUPPLEMENTATION THERAPY
     Dosage: 500 MG, BID
     Route: 048
     Dates: end: 20110204
  11. AMBIEN [Concomitant]
     Indication: SLEEP DISORDER
     Dosage: 10 MG, UID/QD
     Route: 048
     Dates: end: 20110204

REACTIONS (1)
  - DEATH [None]
